FAERS Safety Report 13951448 (Version 1)
Quarter: 2017Q3

REPORT INFORMATION
  Report Type: Spontaneous
  Country: US (occurrence: US)
  Receive Date: 20170908
  Receipt Date: 20170908
  Transmission Date: 20171128
  Serious: Yes (Other)
  Sender: FDA-Public Use
  Company Number: US-IMPAX LABORATORIES, INC-2017-IPXL-02592

PATIENT
  Age: 43 Year
  Sex: Male

DRUGS (2)
  1. BUDESONIDE. [Suspect]
     Active Substance: BUDESONIDE
     Indication: PRODUCT USE IN UNAPPROVED INDICATION
  2. BUDESONIDE. [Suspect]
     Active Substance: BUDESONIDE
     Indication: EOSINOPHILIC OESOPHAGITIS
     Dosage: UNK
     Route: 065

REACTIONS (2)
  - Gastroenteritis eosinophilic [Recovered/Resolved]
  - Product use in unapproved indication [Unknown]
